FAERS Safety Report 24878944 (Version 1)
Quarter: 2025Q1

REPORT INFORMATION
  Report Type: Spontaneous
  Country: US (occurrence: US)
  Receive Date: 20250123
  Receipt Date: 20250123
  Transmission Date: 20250408
  Serious: No
  Sender: CATALYST PHARMA
  Company Number: US-CATALYST PHARMACEUTICALS, INC-US-CATA-23-00672

PATIENT
  Age: 19 Year
  Sex: Female
  Weight: 63.492 kg

DRUGS (11)
  1. FIRDAPSE [Suspect]
     Active Substance: AMIFAMPRIDINE PHOSPHATE
     Indication: Congenital myasthenic syndrome
     Dosage: 1/4 OF A TABLET OR 2.5MG IN THE MORNING, EVENING AND BEFORE BEDTIME
     Route: 048
     Dates: start: 20231010, end: 20231101
  2. FIRDAPSE [Suspect]
     Active Substance: AMIFAMPRIDINE PHOSPHATE
     Dosage: HALF A TABLET OR 5MG 3X A DAY
     Route: 048
     Dates: start: 20231110, end: 202311
  3. FIRDAPSE [Suspect]
     Active Substance: AMIFAMPRIDINE PHOSPHATE
     Dosage: 1/2 TABLET 3X A DAY
     Route: 048
     Dates: end: 202401
  4. FIRDAPSE [Suspect]
     Active Substance: AMIFAMPRIDINE PHOSPHATE
     Route: 048
     Dates: start: 202410, end: 2024
  5. FIRDAPSE [Suspect]
     Active Substance: AMIFAMPRIDINE PHOSPHATE
     Dosage: HALF A TABLET EVERY MORNING, AFTERNOON AND EVENING
     Route: 048
     Dates: start: 2024, end: 2024
  6. LAMICTAL [Concomitant]
     Active Substance: LAMOTRIGINE
     Indication: Product used for unknown indication
     Dosage: 25 MILLIGRAM, QD
     Route: 065
  7. PYRIDOSTIGMINE [Concomitant]
     Active Substance: PYRIDOSTIGMINE
     Indication: Product used for unknown indication
     Dosage: 60 MILLIGRAM, TID
     Route: 065
  8. VYVANSE [Concomitant]
     Active Substance: LISDEXAMFETAMINE DIMESYLATE
     Indication: Product used for unknown indication
     Dosage: 10 MG TWICE A DAY
     Route: 065
  9. ABILIFY [Concomitant]
     Active Substance: ARIPIPRAZOLE
     Indication: Product used for unknown indication
     Dosage: 2 MG DAILY
     Route: 065
  10. LEVOMEFOLIC ACID [Concomitant]
     Active Substance: LEVOMEFOLIC ACID
     Indication: Product used for unknown indication
     Dosage: 7.5 MG DAILY
     Route: 065
  11. DIETARY SUPPLEMENT [Concomitant]
     Active Substance: DIETARY SUPPLEMENT
     Indication: Product used for unknown indication
     Dosage: 200 MG DAILY
     Route: 065

REACTIONS (3)
  - Dyskinesia [Unknown]
  - Tremor [Unknown]
  - Off label use [Unknown]

NARRATIVE: CASE EVENT DATE: 20231001
